FAERS Safety Report 10255992 (Version 2)
Quarter: 2016Q1

REPORT INFORMATION
  Report Type: Spontaneous
  Country: RU (occurrence: RU)
  Receive Date: 20140624
  Receipt Date: 20160317
  Transmission Date: 20160525
  Serious: Yes (Hospitalization)
  Sender: FDA-Public Use
  Company Number: RU-VIIV HEALTHCARE LIMITED-B1006565A

PATIENT
  Sex: Female

DRUGS (6)
  1. RITONAVIR. [Concomitant]
     Active Substance: RITONAVIR
  2. KIVEXA [Suspect]
     Active Substance: ABACAVIR SULFATE\LAMIVUDINE
     Indication: HIV INFECTION
     Route: 065
     Dates: start: 2014
  3. LAMIVUDINE-HIV [Concomitant]
     Active Substance: LAMIVUDINE
  4. REYATAZ [Concomitant]
     Active Substance: ATAZANAVIR SULFATE
  5. STOCRIN [Suspect]
     Active Substance: EFAVIRENZ
     Indication: HIV INFECTION
     Route: 065
     Dates: start: 2014
  6. ZIAGEN [Concomitant]
     Active Substance: ABACAVIR SULFATE

REACTIONS (5)
  - Papilloma viral infection [Unknown]
  - Gastroenteritis [Unknown]
  - Erythema [Recovered/Resolved]
  - Photosensitivity reaction [Not Recovered/Not Resolved]
  - Skin burning sensation [Recovered/Resolved]

NARRATIVE: CASE EVENT DATE: 201405
